FAERS Safety Report 6278687-0 (Version None)
Quarter: 2009Q3

REPORT INFORMATION
  Report Type: 
  Country: None (occurrence: None)
  Receive Date: 20090721
  Receipt Date: 20090706
  Transmission Date: 20100115
  Serious: Yes (Hospitalization)
  Sender: FDA-Public Use
  Company Number: 8048639

PATIENT
  Age: 55 Year
  Sex: Female

DRUGS (2)
  1. CDP870 [Suspect]
  2. PLACEBO [Suspect]

REACTIONS (1)
  - PNEUMONIA [None]
